FAERS Safety Report 19460583 (Version 1)
Quarter: 2021Q2

REPORT INFORMATION
  Report Type: Spontaneous
  Country: IT (occurrence: IT)
  Receive Date: 20210625
  Receipt Date: 20210625
  Transmission Date: 20210717
  Serious: Yes (Hospitalization)
  Sender: FDA-Public Use
  Company Number: IT-TEVA-2021-IT-1925410

PATIENT
  Age: 53 Year
  Sex: Female

DRUGS (5)
  1. CARBOPLATINO TEVA 10 MG/ML [Suspect]
     Active Substance: CARBOPLATIN
     Dosage: CONCENTRATE FOR SOLUTION FOR INJECTION/INFUSION, UNIT DOSE: 140.4 MG
     Route: 042
     Dates: start: 20210429, end: 20210520
  2. KEYTRUDA [Suspect]
     Active Substance: PEMBROLIZUMAB
     Indication: LUNG ADENOCARCINOMA
     Dosage: CONCENTRATE FOR SOLUTION FOR INJECTION/INFUSION, UNIT DOSE: 200 MG
     Route: 042
     Dates: start: 20210429, end: 20210520
  3. KEPPRA [Concomitant]
     Active Substance: LEVETIRACETAM
  4. ALIMTA [Suspect]
     Active Substance: PEMETREXED DISODIUM
     Dosage: 825 MG
     Route: 042
     Dates: start: 20210429, end: 20210520
  5. BLOPRESS 4 MG COMPRESSE [Concomitant]

REACTIONS (7)
  - Pancytopenia [Recovering/Resolving]
  - Anaemia [Recovering/Resolving]
  - Eosinophilia [Recovering/Resolving]
  - Neutropenia [Recovering/Resolving]
  - Thrombocytopenia [Recovering/Resolving]
  - Erythema [Recovering/Resolving]
  - C-reactive protein increased [Recovering/Resolving]

NARRATIVE: CASE EVENT DATE: 20210605
